FAERS Safety Report 4957906-4 (Version None)
Quarter: 2006Q1

REPORT INFORMATION
  Report Type: 
  Country: None (occurrence: None)
  Receive Date: 20060324
  Receipt Date: 20060315
  Transmission Date: 20060701
  Serious: Yes (Hospitalization)
  Sender: FDA-Public Use
  Company Number: FR_050907048

PATIENT
  Age: 66 Year
  Sex: Male
  Weight: 74 kg

DRUGS (3)
  1. ALIMTA [Suspect]
     Indication: PERITONEAL MESOTHELIOMA MALIGNANT
     Dosage: 720 MG, OTHER, INTRAVENOUS
     Route: 042
     Dates: start: 20050330
  2. VITAMIN B NOS [Concomitant]
  3. SPECIAFOLDINE (FOLIC ACID) [Concomitant]

REACTIONS (5)
  - CHILLS [None]
  - HEPATITIS CHOLESTATIC [None]
  - HERPES VIRUS INFECTION [None]
  - NEUTROPENIA [None]
  - PYREXIA [None]
